FAERS Safety Report 25651002 (Version 6)
Quarter: 2025Q3

REPORT INFORMATION
  Report Type: Spontaneous
  Country: US (occurrence: US)
  Receive Date: 20250806
  Receipt Date: 20250915
  Transmission Date: 20251021
  Serious: Yes (Other)
  Sender: ROCHE
  Company Number: US-ROCHE-10000352206

PATIENT
  Age: 16 Year
  Sex: Female
  Weight: 70.76 kg

DRUGS (7)
  1. XOLAIR PFS [Suspect]
     Active Substance: OMALIZUMAB
     Indication: Autoimmune disorder
     Route: 058
     Dates: start: 2024
  2. XOLAIR PFS [Suspect]
     Active Substance: OMALIZUMAB
     Indication: Idiopathic urticaria
  3. CREON [Concomitant]
     Active Substance: PANCRELIPASE AMYLASE\PANCRELIPASE LIPASE\PANCRELIPASE PROTEASE
     Indication: Pancreatic failure
     Route: 048
     Dates: start: 2023
  4. TAGAMET [Concomitant]
     Active Substance: CIMETIDINE
     Indication: Abdominal pain upper
     Route: 048
     Dates: start: 2023
  5. TAGAMET [Concomitant]
     Active Substance: CIMETIDINE
     Indication: Abdominal pain upper
  6. ZYRTEC [Concomitant]
     Active Substance: CETIRIZINE HYDROCHLORIDE
     Indication: Rash
     Dosage: (2) 10 MG TABLETS
     Route: 048
  7. ZYRTEC [Concomitant]
     Active Substance: CETIRIZINE HYDROCHLORIDE
     Indication: Urticaria

REACTIONS (10)
  - Product dose omission issue [Unknown]
  - Needle issue [Unknown]
  - Device defective [Unknown]
  - Abdominal pain upper [Unknown]
  - Rash [Unknown]
  - Muscle spasms [Unknown]
  - Protein total decreased [Unknown]
  - Blood potassium decreased [Unknown]
  - Blood calcium decreased [Unknown]
  - Laboratory test abnormal [Unknown]

NARRATIVE: CASE EVENT DATE: 20250728
